FAERS Safety Report 4338075-0 (Version None)
Quarter: 2004Q1

REPORT INFORMATION
  Report Type: 
  Country: None (occurrence: None)
  Receive Date: 20040329
  Receipt Date: 20040206
  Transmission Date: 20041129
  Serious: No
  Sender: FDA-Public Use
  Company Number: USA040157882

PATIENT
  Age: 38 Year
  Sex: Female
  Weight: 58 kg

DRUGS (1)
  1. STRATTERA [Suspect]
     Indication: ATTENTION DEFICIT/HYPERACTIVITY DISORDER
     Dosage: 80 MG/DAY
     Dates: start: 20040123

REACTIONS (8)
  - FEAR [None]
  - HEART RATE INCREASED [None]
  - NAUSEA [None]
  - NIGHTMARE [None]
  - PANIC ATTACK [None]
  - PARANOIA [None]
  - SOMNOLENCE [None]
  - VOMITING [None]
